FAERS Safety Report 10948986 (Version 1)
Quarter: 2015Q1

REPORT INFORMATION
  Report Type: Spontaneous
  Country: IT (occurrence: None)
  Receive Date: 20150320
  Receipt Date: 20150320
  Transmission Date: 20150721
  Serious: Yes (Hospitalization)
  Sender: FDA-Public Use
  Company Number: NSR_02009_2015

PATIENT
  Age: 1 Month
  Sex: Female
  Weight: 5.6 kg

DRUGS (7)
  1. SODIUM BICARBONATE. [Concomitant]
     Active Substance: SODIUM BICARBONATE
  2. PROPRANOLOL [Suspect]
     Active Substance: PROPRANOLOL\PROPRANOLOL HYDROCHLORIDE
     Indication: SUPRAVENTRICULAR TACHYCARDIA
     Dosage: 0.5 MG/KG, 1X, ONCE ORAL
     Route: 048
  3. ATROPINE [Concomitant]
     Active Substance: ATROPINE
  4. DOPAMINE [Concomitant]
     Active Substance: DOPAMINE\DOPAMINE HYDROCHLORIDE
  5. ADRENALINE /00003901/ [Concomitant]
     Active Substance: EPINEPHRINE
  6. VERAPAMIL [Suspect]
     Active Substance: VERAPAMIL HYDROCHLORIDE
     Indication: SUPRAVENTRICULAR TACHYCARDIA
     Dosage: 0.1 MG/KG, 1X, ONCE INTRAVENOUS (NOT OTHERWISE SPECIFIED)?
     Route: 042
  7. ADENOSINE. [Concomitant]
     Active Substance: ADENOSINE

REACTIONS (12)
  - Extracorporeal membrane oxygenation [None]
  - Ventricular dysfunction [None]
  - Dilatation ventricular [None]
  - Pneumonia [None]
  - Peritoneal dialysis [None]
  - Hyperkalaemia [None]
  - Circulatory collapse [None]
  - Toxicity to various agents [None]
  - Stenotrophomonas infection [None]
  - Hypotension [None]
  - Hypokinesia [None]
  - Metabolic acidosis [None]
